FAERS Safety Report 4351958-0 (Version None)
Quarter: 2004Q2

REPORT INFORMATION
  Report Type: 
  Country: None (occurrence: None)
  Receive Date: 20040429
  Receipt Date: 20040130
  Transmission Date: 20050107
  Serious: No
  Sender: FDA-Public Use
  Company Number: 2004-112979-NL

PATIENT
  Age: 33 Year
  Sex: Female
  Weight: 99.97 kg

DRUGS (1)
  1. NUVARING [Suspect]
     Indication: CONTRACEPTION
     Dosage: DF DAILY
     Dates: start: 20030901

REACTIONS (2)
  - AMENORRHOEA [None]
  - URINARY TRACT INFECTION [None]
